FAERS Safety Report 8364727-1 (Version None)
Quarter: 2012Q2

REPORT INFORMATION
  Report Type: 
  Country: None (occurrence: None)
  Receive Date: 20120516
  Receipt Date: 20120510
  Transmission Date: 20120825
  Serious: Yes (Other)
  Sender: FDA-Public Use
  Company Number: US-AMGEN-USASP2011042202

PATIENT
  Age: 48 Year
  Sex: Female
  Weight: 58.05 kg

DRUGS (5)
  1. NAPROXEN [Concomitant]
     Dosage: 250 MG, UNK
  2. FOLIC ACID [Concomitant]
     Dosage: 5 MG, UNK
  3. ENBREL [Suspect]
     Indication: RHEUMATOID ARTHRITIS
     Dosage: 50 MG, QWK
     Route: 058
     Dates: start: 20101029, end: 20101101
  4. SULFASALAZINE [Concomitant]
     Dosage: 500 MG, UNK
  5. ASCORBIC ACID [Concomitant]
     Dosage: 250 MG, UNK

REACTIONS (5)
  - INJECTION SITE SWELLING [None]
  - DRUG HYPERSENSITIVITY [None]
  - DYSPNOEA [None]
  - OEDEMA PERIPHERAL [None]
  - INJECTION SITE REACTION [None]
